FAERS Safety Report 10617073 (Version 1)
Quarter: 2014Q4

REPORT INFORMATION
  Report Type: Spontaneous
  Country: HR (occurrence: HR)
  Receive Date: 20141201
  Receipt Date: 20141201
  Transmission Date: 20150529
  Serious: Yes (Other)
  Sender: FDA-Public Use
  Company Number: PHHY2014HR153617

PATIENT
  Age: 44 Year
  Sex: Male

DRUGS (6)
  1. CISPLATIN. [Suspect]
     Active Substance: CISPLATIN
     Indication: COMPOSITE LYMPHOMA
     Route: 065
  2. RITUXIMAB [Suspect]
     Active Substance: RITUXIMAB
     Indication: CHRONIC LYMPHOCYTIC LEUKAEMIA STAGE 2
     Route: 065
  3. CYCLOPHOSPHAMIDE. [Suspect]
     Active Substance: CYCLOPHOSPHAMIDE
     Indication: CHRONIC LYMPHOCYTIC LEUKAEMIA STAGE 2
     Route: 065
  4. FLUDARABINE [Suspect]
     Active Substance: FLUDARABINE PHOSPHATE
     Indication: CHRONIC LYMPHOCYTIC LEUKAEMIA STAGE 2
     Dosage: FOUR TIMES WITH FEW CYCLES
     Route: 065
  5. CYTARABINE. [Suspect]
     Active Substance: CYTARABINE
     Indication: COMPOSITE LYMPHOMA
     Route: 065
  6. DEXAMETHASONE. [Suspect]
     Active Substance: DEXAMETHASONE
     Indication: COMPOSITE LYMPHOMA
     Route: 065

REACTIONS (9)
  - Infection [Unknown]
  - Pancytopenia [Unknown]
  - Epstein-Barr virus test positive [Unknown]
  - Lymphadenopathy [Unknown]
  - Drug effect incomplete [Unknown]
  - Composite lymphoma [Unknown]
  - Acute myeloid leukaemia [Unknown]
  - Hepatosplenomegaly [Unknown]
  - Leukocytosis [Unknown]

NARRATIVE: CASE EVENT DATE: 201106
